FAERS Safety Report 8120492-4 (Version None)
Quarter: 2012Q1

REPORT INFORMATION
  Report Type: 
  Country: None (occurrence: None)
  Receive Date: 20120203
  Receipt Date: 20120123
  Transmission Date: 20120608
  Serious: Yes (Death)
  Sender: FDA-Public Use
  Company Number: 2012NUEUSA00069

PATIENT
  Age: 47 Year
  Sex: Male

DRUGS (6)
  1. FLEXERIL [Concomitant]
  2. FENTANYL [Suspect]
     Indication: PAIN
     Dosage: 12 MCG, UNK
     Dates: start: 20111129
  3. BUPROPION HCL [Concomitant]
  4. NUEDEXTA [Suspect]
     Indication: AMYOTROPHIC LATERAL SCLEROSIS
     Dosage: 1 CAP, BID
     Dates: start: 20110228
  5. OMEPRAZOLE [Concomitant]
  6. LORAZEPAM [Suspect]
     Indication: ANXIETY
     Dosage: 1 MG, PRN

REACTIONS (5)
  - TREATMENT NONCOMPLIANCE [None]
  - ANXIETY [None]
  - PAIN [None]
  - DYSPNOEA [None]
  - NASAL CONGESTION [None]
